FAERS Safety Report 8857112 (Version 1)
Quarter: 2012Q4

REPORT INFORMATION
  Report Type: Spontaneous
  Country: US (occurrence: None)
  Receive Date: 20121022
  Receipt Date: 20121022
  Transmission Date: 20130627
  Serious: Yes (Hospitalization)
  Sender: FDA-Public Use
  Company Number: None

PATIENT
  Age: 24 Year
  Sex: Female
  Weight: 74.84 kg

DRUGS (1)
  1. MIRENA [Suspect]

REACTIONS (6)
  - Malaise [None]
  - Vomiting [None]
  - Muscle spasms [None]
  - Tremor [None]
  - Loss of consciousness [None]
  - Pelvic inflammatory disease [None]
